FAERS Safety Report 4352035-5 (Version None)
Quarter: 2004Q2

REPORT INFORMATION
  Report Type: 
  Country: None (occurrence: None)
  Receive Date: 20040503
  Receipt Date: 20040426
  Transmission Date: 20050107
  Serious: Yes (Life-Threatening, Disabling)
  Sender: FDA-Public Use
  Company Number: US-MERCK-0404USA02498

PATIENT
  Sex: Male

DRUGS (1)
  1. ZOCOR [Suspect]
     Route: 048

REACTIONS (2)
  - MYALGIA [None]
  - OEDEMA PERIPHERAL [None]
